FAERS Safety Report 5587574-2 (Version None)
Quarter: 2008Q1

REPORT INFORMATION
  Report Type: 
  Country: None (occurrence: None)
  Receive Date: 20080108
  Receipt Date: 20071227
  Transmission Date: 20080703
  Serious: Yes (Other)
  Sender: FDA-Public Use
  Company Number: CHPA2007US14543

PATIENT
  Age: 54 Year
  Sex: Female

DRUGS (1)
  1. MAALOX ANTIACID/ ANTIGAS MAX STR MULTI SYMPTOM (NCH)(MAGNESIUM HYDROXI [Suspect]
     Dosage: 12 TSP, ORAL
     Route: 048
     Dates: start: 20071224

REACTIONS (6)
  - ABDOMINAL PAIN UPPER [None]
  - DIARRHOEA [None]
  - DRUG TOXICITY [None]
  - GALLBLADDER DISORDER [None]
  - HORMONE LEVEL ABNORMAL [None]
  - NAUSEA [None]
